FAERS Safety Report 24378349 (Version 10)
Quarter: 2025Q1

REPORT INFORMATION
  Report Type: Report from Study
  Country: CO (occurrence: CO)
  Receive Date: 20240930
  Receipt Date: 20250304
  Transmission Date: 20250408
  Serious: Yes (Hospitalization, Other)
  Sender: TAKEDA
  Company Number: CO-TAKEDA-2024TUS094767

PATIENT
  Age: 29 Year
  Sex: Male
  Weight: 49 kg

DRUGS (4)
  1. TEDUGLUTIDE [Suspect]
     Active Substance: TEDUGLUTIDE
     Indication: Short-bowel syndrome
     Dosage: 2.5 MILLIGRAM, QD
  2. TEDUGLUTIDE [Suspect]
     Active Substance: TEDUGLUTIDE
     Dosage: 2.5 MILLIGRAM, QD
  3. TEDUGLUTIDE [Suspect]
     Active Substance: TEDUGLUTIDE
  4. TEDUGLUTIDE [Suspect]
     Active Substance: TEDUGLUTIDE

REACTIONS (16)
  - Suicidal ideation [Unknown]
  - Bacteraemia [Unknown]
  - Device related bacteraemia [Unknown]
  - Blood bilirubin increased [Recovering/Resolving]
  - Depressed mood [Unknown]
  - Loss of personal independence in daily activities [Unknown]
  - Insurance issue [Unknown]
  - Product availability issue [Unknown]
  - Product use issue [Unknown]
  - Crying [Unknown]
  - Fatigue [Unknown]
  - Depression [Unknown]
  - Living alone [Unknown]
  - Treatment noncompliance [Unknown]
  - Product prescribing error [Unknown]
  - Incorrect dose administered [Recovered/Resolved]

NARRATIVE: CASE EVENT DATE: 20240814
